FAERS Safety Report 10290257 (Version 1)
Quarter: 2014Q3

REPORT INFORMATION
  Report Type: Spontaneous
  Country: US (occurrence: None)
  Receive Date: 20140707
  Receipt Date: 20140707
  Transmission Date: 20150326
  Serious: Yes (Other)
  Sender: FDA-Public Use
  Company Number: None

PATIENT
  Age: 67 Year
  Sex: Female
  Weight: 90.72 kg

DRUGS (1)
  1. PULMICORT FLEXHALER [Suspect]
     Active Substance: BUDESONIDE
     Indication: RESPIRATORY DISORDER
     Dosage: 2 PUFFS ?TWICE DAILY ?INHALATION
     Route: 055
     Dates: start: 20140311, end: 20140630

REACTIONS (6)
  - Ageusia [None]
  - Arthralgia [None]
  - Myalgia [None]
  - Drug effect decreased [None]
  - Anosmia [None]
  - Sensory disturbance [None]

NARRATIVE: CASE EVENT DATE: 20140627
